FAERS Safety Report 17497969 (Version 1)
Quarter: 2020Q1

REPORT INFORMATION
  Report Type: Spontaneous
  Country: US (occurrence: US)
  Receive Date: 20200304
  Receipt Date: 20200304
  Transmission Date: 20200409
  Serious: No
  Sender: FDA-Public Use
  Company Number: US-GALDERMA-US19055564

PATIENT
  Age: 21 Year
  Sex: Male

DRUGS (1)
  1. DIFFERIN GEL [Suspect]
     Active Substance: ADAPALENE
     Indication: ORAL HERPES
     Dosage: 0.1%
     Route: 061
     Dates: start: 20190827, end: 20190828

REACTIONS (2)
  - Product use in unapproved indication [Recovered/Resolved]
  - Lip swelling [Not Recovered/Not Resolved]

NARRATIVE: CASE EVENT DATE: 20190827
